FAERS Safety Report 15492583 (Version 2)
Quarter: 2018Q4

REPORT INFORMATION
  Report Type: Spontaneous
  Country: US (occurrence: US)
  Receive Date: 20181012
  Receipt Date: 20181108
  Transmission Date: 20190205
  Serious: Yes (Other)
  Sender: FDA-Public Use
  Company Number: US-ASTRAZENECA-2018SF30325

PATIENT
  Age: 24270 Day
  Sex: Female
  Weight: 123.8 kg

DRUGS (8)
  1. TUDORZA [Suspect]
     Active Substance: ACLIDINIUM BROMIDE
     Indication: ASTHMA
     Route: 055
     Dates: start: 20181001
  2. TUDORZA [Suspect]
     Active Substance: ACLIDINIUM BROMIDE
     Indication: CHRONIC OBSTRUCTIVE PULMONARY DISEASE
     Route: 055
     Dates: start: 20181001
  3. TUDORZA [Suspect]
     Active Substance: ACLIDINIUM BROMIDE
     Indication: THROMBOSIS
     Route: 055
     Dates: start: 20181001
  4. TUDORZA [Suspect]
     Active Substance: ACLIDINIUM BROMIDE
     Indication: PULMONARY MASS
     Route: 055
     Dates: start: 20181001
  5. XARELTO [Concomitant]
     Active Substance: RIVAROXABAN
     Dosage: ONCE A DAY
     Dates: start: 201805
  6. SYMBICORT [Suspect]
     Active Substance: BUDESONIDE\FORMOTEROL FUMARATE DIHYDRATE
     Indication: ASTHMA
     Dosage: 80-4.5MCG, PRESCRIBED 2TWO PUFFS TWO TIMES A DAY
     Route: 055
     Dates: end: 20181001
  7. SINGULAIR [Concomitant]
     Active Substance: MONTELUKAST SODIUM
     Indication: LUNG DISORDER
     Route: 048
  8. ELIQUIS [Concomitant]
     Active Substance: APIXABAN

REACTIONS (5)
  - Chronic obstructive pulmonary disease [Not Recovered/Not Resolved]
  - Pulmonary thrombosis [Unknown]
  - Product dose omission [Not Recovered/Not Resolved]
  - Device malfunction [Unknown]
  - Pulmonary mass [Not Recovered/Not Resolved]

NARRATIVE: CASE EVENT DATE: 20181002
